FAERS Safety Report 20720904 (Version 1)
Quarter: 2022Q2

REPORT INFORMATION
  Report Type: Spontaneous
  Country: US (occurrence: None)
  Receive Date: 20220415
  Receipt Date: 20220415
  Transmission Date: 20220721
  Serious: Yes (Other)
  Sender: FDA-Public Use
  Company Number: None

PATIENT

DRUGS (1)
  1. ACETAMINOPHEN\HYDROCODONE [Suspect]
     Active Substance: ACETAMINOPHEN\HYDROCODONE
     Indication: Pain
     Dosage: OTHER QUANTITY : 1 TABLET(S);?FREQUENCY : EVERY 8 HOURS;?
     Route: 048
     Dates: start: 20220320, end: 20220405

REACTIONS (7)
  - Product substitution issue [None]
  - Malaise [None]
  - Headache [None]
  - Drug ineffective [None]
  - Suspected product quality issue [None]
  - Inadequate analgesia [None]
  - Product solubility abnormal [None]

NARRATIVE: CASE EVENT DATE: 20220320
